FAERS Safety Report 22873822 (Version 2)
Quarter: 2023Q4

REPORT INFORMATION
  Report Type: Report from Study
  Country: US (occurrence: US)
  Receive Date: 20230828
  Receipt Date: 20231003
  Transmission Date: 20240110
  Serious: Yes (Hospitalization)
  Sender: FDA-Public Use
  Company Number: US-BAYER-2023A114237

PATIENT
  Age: 75 Year
  Sex: Female
  Weight: 83.4 kg

DRUGS (4)
  1. FINERENONE [Suspect]
     Active Substance: FINERENONE
     Indication: Left ventricular failure
     Dosage: 20 MG
     Route: 048
     Dates: start: 20210623
  2. XARELTO [Suspect]
     Active Substance: RIVAROXABAN
     Indication: Atrial fibrillation
     Dosage: 20 MG, QD
     Route: 048
     Dates: start: 2018, end: 20230724
  3. ASPIRIN [Suspect]
     Active Substance: ASPIRIN
     Indication: Cerebrovascular accident
     Dosage: 81 MG, QD
     Route: 048
     Dates: start: 20181008, end: 20230724
  4. ABCID [OMEPRAZOLE] [Concomitant]
     Indication: Gastrooesophageal reflux disease
     Dosage: 40 MG, BID
     Route: 048
     Dates: start: 2000

REACTIONS (1)
  - Gastrointestinal haemorrhage [Recovered/Resolved]

NARRATIVE: CASE EVENT DATE: 20230710
